FAERS Safety Report 9807701 (Version 1)
Quarter: 2014Q1

REPORT INFORMATION
  Report Type: Spontaneous
  Country: US (occurrence: US)
  Receive Date: 20140110
  Receipt Date: 20140110
  Transmission Date: 20141002
  Serious: Yes (Death, Hospitalization, Other)
  Sender: FDA-Public Use
  Company Number: US-UCBSA-107516

PATIENT
  Age: 16 Year
  Sex: Male

DRUGS (2)
  1. ACETAMINOPHEN/HYDROCODONE [Suspect]
  2. ALPRAZOLAM [Suspect]

REACTIONS (8)
  - Cardio-respiratory arrest [Fatal]
  - Completed suicide [Fatal]
  - Brain hypoxia [Fatal]
  - Toxicity to various agents [Fatal]
  - Dysarthria [Unknown]
  - Lactic acidosis [Unknown]
  - Ischaemic hepatitis [Unknown]
  - Dehydration [Unknown]
